FAERS Safety Report 8885671 (Version 1)
Quarter: 2012Q4

REPORT INFORMATION
  Report Type: 
  Country: US (occurrence: US)
  Receive Date: 20121102
  Receipt Date: 20121102
  Transmission Date: 20130627
  Serious: Yes (Hospitalization, Disabling, Other)
  Sender: FDA-Public Use
  Company Number: US-ACCORD-015062

PATIENT
  Age: 22 Year
  Sex: Male

DRUGS (12)
  1. CEFEPIME [Concomitant]
  2. ATOVAQUONE [Concomitant]
  3. MICAFUNGIN [Concomitant]
  4. ACYCLOVIR [Concomitant]
  5. METHOTREXATE [Concomitant]
  6. COTRIMOXAZOLE [Concomitant]
  7. INSULIN LANTUS [Concomitant]
  8. CALCITRIOL [Concomitant]
  9. LANSOPRAZOLE [Concomitant]
  10. ETOPOSIDE [Suspect]
     Indication: HEMOPHAGOCYTIC LYMPHOHISTIOCYTOSIS
     Dosage: received 3 doses on days 1, 4, and 8
  11. VANCOMYCIN [Concomitant]
  12. LEVOFLOXACIN [Concomitant]

REACTIONS (3)
  - Posterior reversible encephalopathy syndrome [Recovered/Resolved]
  - Hydrocephalus [Recovered/Resolved]
  - Off label use [Unknown]
